FAERS Safety Report 21017036 (Version 6)
Quarter: 2024Q4

REPORT INFORMATION
  Report Type: Report from Study
  Country: DE (occurrence: DE)
  Receive Date: 20220628
  Receipt Date: 20241011
  Transmission Date: 20250114
  Serious: Yes (Hospitalization, Other)
  Sender: ROCHE
  Company Number: DE-ROCHE-2740843

PATIENT
  Age: 36 Year
  Sex: Female
  Weight: 56.0 kg

DRUGS (16)
  1. OCREVUS [Suspect]
     Active Substance: OCRELIZUMAB
     Indication: Relapsing-remitting multiple sclerosis
     Dosage: 600 MG 330 DAYS
     Route: 042
     Dates: start: 20201208
  2. OCREVUS [Suspect]
     Active Substance: OCRELIZUMAB
     Route: 042
  3. OCREVUS [Suspect]
     Active Substance: OCRELIZUMAB
     Dosage: SUBSEQUENT DOSE ON 23/APR/2024 (OCRELIZUMAB INFUSION AFTER PREGNANCY AND BREASTFEEDING)
     Route: 042
     Dates: start: 20230308
  4. COMIRNATY (TOZINAMERAN) [Suspect]
     Active Substance: TOZINAMERAN
     Indication: COVID-19
     Dosage: 1ST VACCINE
     Route: 065
  5. COMIRNATY (TOZINAMERAN) [Suspect]
     Active Substance: TOZINAMERAN
     Dosage: 2ND VACCINE
     Route: 065
  6. COMIRNATY (TOZINAMERAN) [Suspect]
     Active Substance: TOZINAMERAN
     Dosage: 3RD VACCINE
     Route: 065
  7. COMIRNATY (TOZINAMERAN) [Suspect]
     Active Substance: TOZINAMERAN
     Dosage: 4TH VACCINE
     Route: 065
     Dates: start: 20210830, end: 20210830
  8. AMITRIPTYLINE [Concomitant]
     Active Substance: AMITRIPTYLINE
  9. TORSEMIDE [Concomitant]
     Active Substance: TORSEMIDE
  10. KEPPRA [Concomitant]
     Active Substance: LEVETIRACETAM
     Dosage: 200 MG TO 250 MG
  11. FOLIC ACID [Concomitant]
     Active Substance: FOLIC ACID
  12. VITAMIN D3 [Concomitant]
     Active Substance: CHOLECALCIFEROL
  13. PREGABALIN [Concomitant]
     Active Substance: PREGABALIN
  14. PANTOPRAZOLE SODIUM [Concomitant]
     Active Substance: PANTOPRAZOLE SODIUM
  15. SERTRALINE HYDROCHLORIDE [Concomitant]
     Active Substance: SERTRALINE HYDROCHLORIDE
  16. TROSPIUM CHLORIDE [Concomitant]
     Active Substance: TROSPIUM CHLORIDE

REACTIONS (19)
  - Off label use [Unknown]
  - Muscle spasticity [Recovering/Resolving]
  - Pain [Recovering/Resolving]
  - Tachycardia [Recovered/Resolved]
  - Respiration abnormal [Recovered/Resolved]
  - Listless [Not Recovered/Not Resolved]
  - Sleep deficit [Not Recovered/Not Resolved]
  - SARS-CoV-2 antibody test negative [Not Recovered/Not Resolved]
  - Lymphocyte count decreased [Recovering/Resolving]
  - Headache [Recovered/Resolved]
  - Urinary retention [Not Recovered/Not Resolved]
  - COVID-19 [Recovered/Resolved]
  - Breast disorder [Not Recovered/Not Resolved]
  - Weight decreased [Not Recovered/Not Resolved]
  - Solar lentigo [Not Recovered/Not Resolved]
  - Fatigue [Not Recovered/Not Resolved]
  - Maternal exposure before pregnancy [Unknown]
  - Maternal exposure during breast feeding [Unknown]
  - Epilepsy [Recovered/Resolved]

NARRATIVE: CASE EVENT DATE: 20201208
